FAERS Safety Report 9752451 (Version 1)
Quarter: 2013Q4

REPORT INFORMATION
  Report Type: Spontaneous
  Country: US (occurrence: US)
  Receive Date: 20131213
  Receipt Date: 20131213
  Transmission Date: 20140711
  Serious: Yes (Other)
  Sender: FDA-Public Use
  Company Number: US-AMGEN-USASP2013086461

PATIENT
  Sex: Female

DRUGS (2)
  1. XGEVA [Suspect]
     Indication: METASTASES TO BONE
     Dosage: UNK
     Route: 065
  2. ZOMETA [Concomitant]

REACTIONS (3)
  - Lung disorder [Unknown]
  - Dyspnoea [Unknown]
  - Nausea [Unknown]
